FAERS Safety Report 9946825 (Version 1)
Quarter: 2014Q1

REPORT INFORMATION
  Report Type: Report from Study
  Country: US (occurrence: US)
  Receive Date: 20140303
  Receipt Date: 20140303
  Transmission Date: 20141002
  Serious: No
  Sender: FDA-Public Use
  Company Number: US-ABBVIE-13P-163-1065368-00

PATIENT
  Age: 31 Year
  Sex: Female

DRUGS (6)
  1. HUMIRA [Suspect]
     Indication: CROHN^S DISEASE
     Dates: start: 20120907
  2. 6MP [Concomitant]
     Indication: CROHN^S DISEASE
  3. PREDNISONE [Concomitant]
     Indication: CROHN^S DISEASE
  4. IRON [Concomitant]
     Indication: CROHN^S DISEASE
  5. B-12 [Concomitant]
     Indication: CROHN^S DISEASE
  6. FOLIC ACID [Concomitant]
     Indication: CROHN^S DISEASE

REACTIONS (5)
  - Gastrooesophageal reflux disease [Recovering/Resolving]
  - Injection site pain [Recovering/Resolving]
  - Contusion [Recovering/Resolving]
  - Contusion [Unknown]
  - Swelling [Unknown]
